FAERS Safety Report 14018442 (Version 1)
Quarter: 2017Q3

REPORT INFORMATION
  Report Type: Spontaneous
  Country: US (occurrence: US)
  Receive Date: 20170928
  Receipt Date: 20170928
  Transmission Date: 20171128
  Serious: No
  Sender: FDA-Public Use
  Company Number: US-TEVA-737597ACC

PATIENT
  Age: 67 Year
  Sex: Female
  Weight: 85.81 kg

DRUGS (4)
  1. GABAPENTIN. [Suspect]
     Active Substance: GABAPENTIN
     Indication: PRODUCT USED FOR UNKNOWN INDICATION
     Route: 065
  2. LETAIRIS [Concomitant]
     Active Substance: AMBRISENTAN
  3. REMODULIN [Suspect]
     Active Substance: TREPROSTINIL
     Indication: PULMONARY ARTERIAL HYPERTENSION
     Route: 058
     Dates: start: 20141112
  4. PLURONIC LECITHIN ORGANOGEL [Suspect]
     Active Substance: LECITHIN\POLOXAMER 407
     Indication: INFUSION SITE PAIN
     Route: 065

REACTIONS (9)
  - Infusion site swelling [Unknown]
  - Infusion site pain [Unknown]
  - Infusion site scar [Unknown]
  - Dermatitis contact [Unknown]
  - Infusion site inflammation [Unknown]
  - Infusion site joint erythema [Unknown]
  - Somnolence [Unknown]
  - Infusion site irritation [Unknown]
  - Impaired healing [Unknown]

NARRATIVE: CASE EVENT DATE: 201611
